FAERS Safety Report 4959359-9 (Version None)
Quarter: 2006Q1

REPORT INFORMATION
  Report Type: 
  Country: None (occurrence: None)
  Receive Date: 20060331
  Receipt Date: 19930603
  Transmission Date: 20060701
  Serious: Yes (Death)
  Sender: FDA-Public Use
  Company Number: 1993UW15386

PATIENT
  Age: 11 Year
  Sex: Female
  Weight: 44 kg

DRUGS (4)
  1. DIPRIVAN [Suspect]
     Indication: SEDATION
     Dosage: 8.5 HOURS
     Route: 042
     Dates: start: 19930501, end: 19930501
  2. METHYLPREDNISOLONE [Concomitant]
     Route: 042
     Dates: start: 19930501, end: 19930501
  3. FUROSEMIDE [Concomitant]
     Route: 042
     Dates: start: 19930501, end: 19930501
  4. MANNITOL [Concomitant]
     Route: 042
     Dates: start: 19930501, end: 19930501

REACTIONS (13)
  - BRAIN OEDEMA [None]
  - CARDIAC ARREST [None]
  - HYPERKALAEMIA [None]
  - HYPOTENSION [None]
  - INTRACRANIAL PRESSURE INCREASED [None]
  - METABOLIC ACIDOSIS [None]
  - MYOGLOBINURIA [None]
  - NODAL RHYTHM [None]
  - POST PROCEDURAL COMPLICATION [None]
  - RENAL FAILURE ACUTE [None]
  - VENTRICULAR ARRHYTHMIA [None]
  - VENTRICULAR FIBRILLATION [None]
  - VENTRICULAR TACHYCARDIA [None]
